FAERS Safety Report 8737649 (Version 2)
Quarter: 2012Q4

REPORT INFORMATION
  Report Type: 
  Country: US (occurrence: US)
  Receive Date: 20120822
  Receipt Date: 20121114
  Transmission Date: 20130627
  Serious: No
  Sender: FDA-Public Use
  Company Number: US-009507513-0507USA00449

PATIENT

DRUGS (4)
  1. FOSAMAX [Suspect]
     Indication: OSTEOPENIA
     Dosage: 35 mg, QW
     Route: 048
     Dates: start: 20050605
  2. FOSAMAX [Suspect]
     Indication: OSTEOPOROSIS
  3. PREMARIN [Concomitant]
  4. DIGOXIN [Concomitant]

REACTIONS (2)
  - Lymphadenopathy [Not Recovered/Not Resolved]
  - Back pain [Not Recovered/Not Resolved]
